FAERS Safety Report 25440795 (Version 1)
Quarter: 2025Q2

REPORT INFORMATION
  Report Type: Spontaneous
  Country: US (occurrence: US)
  Receive Date: 20250616
  Receipt Date: 20250616
  Transmission Date: 20250717
  Serious: No
  Sender: UCB
  Company Number: US-UCBSA-2025014979

PATIENT
  Sex: Female

DRUGS (2)
  1. BIMZELX [Suspect]
     Active Substance: BIMEKIZUMAB-BKZX
     Indication: Psoriasis
     Dosage: 160 MILLIGRAM, EV 4 WEEKS
     Route: 058
     Dates: start: 20250218
  2. TALTZ [Concomitant]
     Active Substance: IXEKIZUMAB
     Indication: Product used for unknown indication

REACTIONS (9)
  - Condition aggravated [Unknown]
  - Joint stiffness [Unknown]
  - Fatigue [Unknown]
  - Pyrexia [Unknown]
  - Hyperhidrosis [Unknown]
  - Infection [Unknown]
  - Illness [Unknown]
  - Product dose omission issue [Unknown]
  - Drug ineffective [Unknown]
